FAERS Safety Report 6924258-X (Version None)
Quarter: 2010Q3

REPORT INFORMATION
  Report Type: 
  Country: None (occurrence: None)
  Receive Date: 20100813
  Receipt Date: 20100802
  Transmission Date: 20110219
  Serious: Yes (Other)
  Sender: FDA-Public Use
  Company Number: GB-GENENTECH-305215

PATIENT
  Sex: Female

DRUGS (4)
  1. RITUXIMAB [Suspect]
     Indication: MICROSCOPIC POLYANGIITIS
     Dosage: 375 MG/M2, UNK
     Route: 065
     Dates: start: 20061103
  2. CYCLOPHOSPHAMIDE [Suspect]
     Indication: MICROSCOPIC POLYANGIITIS
     Dosage: 15 MG/KG, UNK
     Route: 042
  3. METHYLPREDNISOLONE [Concomitant]
     Indication: PRODUCT USED FOR UNKNOWN INDICATION
     Dosage: 2 G, UNK
     Route: 042
  4. METHYLPREDNISOLONE [Concomitant]
     Dosage: AFTER RANDOMIZATION.
     Route: 042

REACTIONS (1)
  - MALIGNANT MELANOMA [None]
